FAERS Safety Report 12479871 (Version 1)
Quarter: 2016Q2

REPORT INFORMATION
  Report Type: Spontaneous
  Country: US (occurrence: US)
  Receive Date: 20160620
  Receipt Date: 20160620
  Transmission Date: 20160815
  Serious: No
  Sender: FDA-Public Use
  Company Number: US-009507513-1606USA001773

PATIENT
  Age: 80 Year
  Sex: Female

DRUGS (1)
  1. PROVENTIL [Suspect]
     Active Substance: ALBUTEROL
     Indication: BRONCHITIS
     Dosage: 4 PUFF, QD
     Route: 055
     Dates: start: 20160526

REACTIONS (3)
  - Fatigue [Unknown]
  - Disease susceptibility [Unknown]
  - Asthenia [Unknown]

NARRATIVE: CASE EVENT DATE: 2016
